FAERS Safety Report 9011478 (Version 1)
Quarter: 2013Q1

REPORT INFORMATION
  Report Type: Spontaneous
  Country: US (occurrence: US)
  Receive Date: 20130108
  Receipt Date: 20130108
  Transmission Date: 20140127
  Serious: Yes (Hospitalization)
  Sender: FDA-Public Use
  Company Number: US-BAYER-2013-001076

PATIENT
  Age: 29 Year
  Sex: Female

DRUGS (7)
  1. YAZ [Suspect]
     Indication: MENSTRUATION IRREGULAR
     Dosage: 1 PILL DAILY
  2. NOVOLOG [Concomitant]
  3. TRICOR [Concomitant]
  4. LANTUS [Concomitant]
  5. VICTOZA [Concomitant]
  6. IBUPROFEN [Concomitant]
  7. TYLENOL [Concomitant]

REACTIONS (1)
  - Deep vein thrombosis [None]
